FAERS Safety Report 5605868-9 (Version None)
Quarter: 2008Q1

REPORT INFORMATION
  Report Type: 
  Country: None (occurrence: None)
  Receive Date: 20080129
  Receipt Date: 20080124
  Transmission Date: 20080703
  Serious: Yes (Death, Other)
  Sender: FDA-Public Use
  Company Number: PHHO2007FR21068

PATIENT
  Age: 87 Year
  Sex: Female

DRUGS (11)
  1. GLEEVEC [Suspect]
     Indication: GASTROINTESTINAL STROMAL TUMOUR
     Dosage: 400 MG, QD
     Route: 048
     Dates: start: 20070703, end: 20070911
  2. KERLONE [Concomitant]
  3. PRETERAX [Concomitant]
  4. KARDEGIC [Concomitant]
  5. ELISOR [Concomitant]
  6. PLAVIX [Concomitant]
  7. LASIX [Concomitant]
  8. EFFERALGAN [Concomitant]
  9. TRANSIPEG [Concomitant]
  10. NEXIUM [Concomitant]
  11. MOTILIUM [Concomitant]

REACTIONS (5)
  - DEHYDRATION [None]
  - ELECTROLYTE IMBALANCE [None]
  - FLUID INTAKE REDUCED [None]
  - OEDEMA [None]
  - SUDDEN DEATH [None]
